FAERS Safety Report 7826762-9 (Version None)
Quarter: 2011Q4

REPORT INFORMATION
  Report Type: 
  Country: None (occurrence: None)
  Receive Date: 20111020
  Receipt Date: 20111006
  Transmission Date: 20120403
  Serious: Yes (Hospitalization, Congenital Anomaly, Other)
  Sender: FDA-Public Use
  Company Number: DE-MYLANLABS-2011S1020844

PATIENT
  Sex: Female
  Weight: 2 kg

DRUGS (3)
  1. AZATHIOPRINE [Suspect]
     Dosage: 200 [MG/D (-150) ]
     Route: 064
  2. ATENOLOL [Suspect]
     Dosage: 100 [MG/D ]
     Route: 064
     Dates: start: 20071230, end: 20080918
  3. FOLIO [Concomitant]
     Route: 064

REACTIONS (5)
  - CONGENITAL TRICUSPID VALVE INCOMPETENCE [None]
  - MATERNAL EXPOSURE DURING PREGNANCY [None]
  - ATRIAL SEPTAL DEFECT [None]
  - HYPOGLYCAEMIA NEONATAL [None]
  - SMALL FOR DATES BABY [None]
